FAERS Safety Report 10502289 (Version 2)
Quarter: 2014Q4

REPORT INFORMATION
  Report Type: Report from Study
  Country: BR (occurrence: BR)
  Receive Date: 20141007
  Receipt Date: 20141022
  Transmission Date: 20150528
  Serious: Yes (Other)
  Sender: FDA-Public Use
  Company Number: PHHY2014BR129673

PATIENT
  Sex: Female
  Weight: 71 kg

DRUGS (4)
  1. GILENYA [Suspect]
     Active Substance: FINGOLIMOD HYDROCHLORIDE
     Indication: MULTIPLE SCLEROSIS
     Dosage: 0.5 MG, QD
     Route: 048
  2. ELANI 28 [Concomitant]
     Indication: CONTRACEPTION
     Dosage: UNK UKN, ONCE A DAY
     Dates: start: 201405
  3. CLINDOXYL [Concomitant]
     Active Substance: BENZOYL PEROXIDE\CLINDAMYCIN PHOSPHATE
     Indication: ACNE
     Dosage: UNK UKN, ONCE A DAY
     Dates: start: 201409
  4. FUNGIROX [Concomitant]
     Indication: ONYCHOMYCOSIS
     Dosage: UNK ONCE A WEEK
     Dates: start: 201409

REACTIONS (5)
  - Haemorrhoids [Recovering/Resolving]
  - Somnolence [Recovering/Resolving]
  - Gingival bleeding [Recovering/Resolving]
  - Haemorrhage [Recovering/Resolving]
  - Sinusitis [Recovering/Resolving]
